FAERS Safety Report 8359574-0 (Version None)
Quarter: 2012Q2

REPORT INFORMATION
  Report Type: 
  Country: None (occurrence: None)
  Receive Date: 20120515
  Receipt Date: 20120504
  Transmission Date: 20120825
  Serious: Yes (Hospitalization)
  Sender: FDA-Public Use
  Company Number: US-ELI_LILLY_AND_COMPANY-US201205002730

PATIENT
  Sex: Female

DRUGS (3)
  1. INSULIN [Concomitant]
     Dosage: UNK
     Dates: start: 19730101
  2. HUMALOG [Suspect]
     Indication: DIABETES MELLITUS
     Dosage: UNK, PRN
  3. HUMALOG [Suspect]
     Dosage: UNK, PRN

REACTIONS (1)
  - BLOOD GLUCOSE ABNORMAL [None]
